FAERS Safety Report 6807387-0 (Version None)
Quarter: 2010Q2

REPORT INFORMATION
  Report Type: 
  Country: None (occurrence: None)
  Receive Date: 20100629
  Receipt Date: 20080926
  Transmission Date: 20101027
  Serious: Yes (Other)
  Sender: FDA-Public Use
  Company Number: US-PFIZER INC-2008065498

PATIENT
  Sex: Female
  Weight: 75 kg

DRUGS (2)
  1. ARTHROTEC [Suspect]
     Indication: ARTHRALGIA
     Dates: start: 20080802, end: 20080802
  2. TOPROL-XL [Concomitant]
     Indication: MITRAL VALVE PROLAPSE

REACTIONS (3)
  - ABDOMINAL PAIN [None]
  - INSOMNIA [None]
  - PELVIC PAIN [None]
